FAERS Safety Report 17087825 (Version 7)
Quarter: 2020Q3

REPORT INFORMATION
  Report Type: Spontaneous
  Country: FR (occurrence: FR)
  Receive Date: 20191128
  Receipt Date: 20200813
  Transmission Date: 20201102
  Serious: Yes (Hospitalization, Other)
  Sender: FDA-Public Use
  Company Number: FR-TEVA-2019-FR-1145597

PATIENT
  Age: 20 Year
  Sex: Female

DRUGS (1)
  1. SEASONIQUE [Suspect]
     Active Substance: ETHINYL ESTRADIOL\LEVONORGESTREL
     Indication: DYSMENORRHOEA
     Dosage: 1 DOSAGE FORMS DAILY; 150 MICROGRAMS/30 MICROGRAMS + 10 MICROGRAMS
     Route: 065

REACTIONS (4)
  - Headache [Recovered/Resolved]
  - Cerebral venous thrombosis [Not Recovered/Not Resolved]
  - Off label use [Unknown]
  - Meningeal disorder [Unknown]

NARRATIVE: CASE EVENT DATE: 20191105
